FAERS Safety Report 19520337 (Version 2)
Quarter: 2021Q3

REPORT INFORMATION
  Report Type: Spontaneous
  Country: CA (occurrence: CA)
  Receive Date: 20210712
  Receipt Date: 20210715
  Transmission Date: 20211014
  Serious: Yes (Hospitalization, Other)
  Sender: FDA-Public Use
  Company Number: CA-SA-2021SA227042

PATIENT
  Age: 48 Year
  Sex: Female
  Weight: 106 kg

DRUGS (22)
  1. APREPITANT. [Suspect]
     Active Substance: APREPITANT
     Indication: SUPPORTIVE CARE
     Dosage: 80 MG, QD
     Route: 048
  2. LEVOFLOXACIN. [Suspect]
     Active Substance: LEVOFLOXACIN
     Indication: TARDIVE DYSKINESIA
     Dosage: 500 MG, QD
     Route: 048
  3. ACETAMINOPHEN AND CODEINE [Suspect]
     Active Substance: ACETAMINOPHEN\CODEINE PHOSPHATE
     Indication: TARDIVE DYSKINESIA
     Dosage: 30.0 MG, FREQUENCY 1 EVERY 4 HRS
  4. APREPITANT. [Suspect]
     Active Substance: APREPITANT
     Dosage: 125.0 MG
     Route: 048
  5. DEXAMETHASONE. [Suspect]
     Active Substance: DEXAMETHASONE
     Indication: SUPPORTIVE CARE
  6. LORAZEPAM. [Suspect]
     Active Substance: LORAZEPAM
     Indication: TARDIVE DYSKINESIA
     Dosage: 500 MG, QD
     Route: 048
  7. METOCLOPRAMIDE. [Suspect]
     Active Substance: METOCLOPRAMIDE
     Indication: TARDIVE DYSKINESIA
     Dosage: 0.5 MG, FREQUENCY: 1 EVERY 6 HRS
  8. DEXAMETHASONE. [Suspect]
     Active Substance: DEXAMETHASONE
     Indication: NAUSEA
     Dosage: 20.0 MG, QD
  9. DOXORUBICIN [Suspect]
     Active Substance: DOXORUBICIN
     Indication: BREAST CANCER
     Dosage: 136.0 MG
     Route: 042
  10. FILGRASTIM [Suspect]
     Active Substance: FILGRASTIM
     Indication: SUPPORTIVE CARE
     Dosage: 480 MG, QD
     Route: 065
  11. FILGRASTIM [Suspect]
     Active Substance: FILGRASTIM
     Dosage: 125 MG
     Route: 048
  12. PROCYTOX [Suspect]
     Active Substance: CYCLOPHOSPHAMIDE
     Indication: BREAST CANCER
     Dosage: 1360.0 MG
     Route: 042
  13. PACLITAXEL. [Suspect]
     Active Substance: PACLITAXEL
     Indication: BREAST CANCER
     Dosage: 243 MG
     Route: 042
  14. TRASTUZUMAB. [Suspect]
     Active Substance: TRASTUZUMAB
     Indication: TARDIVE DYSKINESIA
     Dosage: 626 MG
     Route: 065
  15. TRASTUZUMAB. [Suspect]
     Active Substance: TRASTUZUMAB
     Dosage: 866 MG
     Route: 065
  16. ENOXAPARIN SODIUM. [Suspect]
     Active Substance: ENOXAPARIN SODIUM
     Indication: TARDIVE DYSKINESIA
     Dosage: 150 MG, QD
     Route: 058
  17. RANITIDINE. [Suspect]
     Active Substance: RANITIDINE
     Indication: TARDIVE DYSKINESIA
     Dosage: 626.0 MG
     Route: 065
  18. BETAMETHASONE. [Suspect]
     Active Substance: BETAMETHASONE
     Indication: TARDIVE DYSKINESIA
     Dosage: 1 DF, FREQUENCY: EVERY 12 HRS
     Route: 048
  19. PACLITAXEL. [Suspect]
     Active Substance: PACLITAXEL
     Dosage: 393 MG
     Route: 042
  20. PACLITAXEL. [Suspect]
     Active Substance: PACLITAXEL
     Dosage: 303 MG
     Route: 042
  21. PEGFILGRASTIM [Suspect]
     Active Substance: PEGFILGRASTIM
     Indication: SUPPORTIVE CARE
     Dosage: 6 MG
     Route: 058
  22. ONDANSETRON [Suspect]
     Active Substance: ONDANSETRON
     Indication: SUPPORTIVE CARE
     Dosage: 8.0 MG
     Route: 048

REACTIONS (10)
  - Atelectasis [Recovered/Resolved]
  - Computerised tomogram thorax abnormal [Recovered/Resolved]
  - Dyspnoea [Recovered/Resolved]
  - Hypoxia [Recovered/Resolved]
  - Nausea [Recovered/Resolved]
  - Rash [Recovered/Resolved]
  - Fatigue [Recovered/Resolved]
  - Cough [Recovered/Resolved]
  - Gastrointestinal disorder [Recovered/Resolved]
  - Pyrexia [Recovered/Resolved]
